FAERS Safety Report 10467508 (Version 6)
Quarter: 2015Q3

REPORT INFORMATION
  Report Type: Spontaneous
  Country: US (occurrence: US)
  Receive Date: 20140922
  Receipt Date: 20150803
  Transmission Date: 20151125
  Serious: Yes (Hospitalization, Other)
  Sender: FDA-Public Use
  Company Number: US-MERCK-1409USA009873

PATIENT
  Sex: Female
  Weight: 79.37 kg

DRUGS (4)
  1. BYETTA [Suspect]
     Active Substance: EXENATIDE
     Dosage: 5 MICROGRAM, QD
     Route: 058
     Dates: start: 20070615, end: 200708
  2. BYETTA [Suspect]
     Active Substance: EXENATIDE
     Dosage: 10 MICROGRAM, BID
     Route: 058
     Dates: start: 20060728, end: 20070116
  3. BYETTA [Suspect]
     Active Substance: EXENATIDE
     Indication: TYPE 2 DIABETES MELLITUS
     Dosage: 5 MICROGRAM, BID
     Route: 058
     Dates: start: 20060627, end: 20060726
  4. JANUVIA [Suspect]
     Active Substance: SITAGLIPTIN PHOSPHATE
     Indication: TYPE 2 DIABETES MELLITUS
     Dosage: 100 MG, QD
     Route: 048
     Dates: start: 20090323, end: 20090810

REACTIONS (39)
  - Hypoaesthesia [Unknown]
  - Hypertension [Unknown]
  - Anastomotic leak [Unknown]
  - Hepatic steatosis [Unknown]
  - Fungal infection [Unknown]
  - Constipation [Unknown]
  - Hypersensitivity [Unknown]
  - Pancreatitis [Unknown]
  - Paraesthesia [Unknown]
  - Blood glucose abnormal [Unknown]
  - Small intestinal obstruction [Unknown]
  - Ovarian vein thrombosis [Not Recovered/Not Resolved]
  - Drug ineffective [Unknown]
  - Back pain [Unknown]
  - Ingrowing nail [Unknown]
  - Insulin resistance [Unknown]
  - Kidney fibrosis [Unknown]
  - Pancreatectomy [Unknown]
  - Oedema peripheral [Unknown]
  - Plantar fasciitis [Unknown]
  - Type 1 diabetes mellitus [Unknown]
  - Plantar fasciitis [Unknown]
  - Sleep apnoea syndrome [Unknown]
  - Chest discomfort [Unknown]
  - Adverse drug reaction [Unknown]
  - Pancreatic leak [Unknown]
  - Pyelonephritis [Unknown]
  - Pain in extremity [Unknown]
  - Pancreaticogastrostomy [Unknown]
  - Foot deformity [Unknown]
  - Dyspnoea [Unknown]
  - Gastrooesophageal reflux disease [Unknown]
  - Pancreatic neuroendocrine tumour [Unknown]
  - Tendonitis [Unknown]
  - Bursitis [Unknown]
  - Night sweats [Unknown]
  - Atelectasis [Unknown]
  - Uterine leiomyoma [Unknown]
  - Headache [Recovered/Resolved]

NARRATIVE: CASE EVENT DATE: 20090810
